FAERS Safety Report 8263612 (Version 3)
Quarter: 2013Q1

REPORT INFORMATION
  Report Type: Spontaneous
  Country: NL (occurrence: NL)
  Receive Date: 20111128
  Receipt Date: 20130128
  Transmission Date: 20140127
  Serious: Yes (Life-Threatening, Hospitalization, Other)
  Sender: FDA-Public Use
  Company Number: NL-AMGEN-NLDSP2011061973

PATIENT
  Age: 80 Year
  Sex: Male
  Weight: 79 kg

DRUGS (2)
  1. ENBREL [Suspect]
     Indication: RHEUMATOID ARTHRITIS
     Dosage: 50 MG, WEEKLY
     Dates: start: 200911
  2. PREDNISON [Concomitant]
     Indication: RHEUMATOID ARTHRITIS
     Dosage: 5 MG, 1X/DAY

REACTIONS (5)
  - Aortic aneurysm [Recovering/Resolving]
  - Lung neoplasm malignant [Recovering/Resolving]
  - Cystitis [Recovering/Resolving]
  - Kidney infection [Recovering/Resolving]
  - Pyrexia [Unknown]
